FAERS Safety Report 8616679-4 (Version None)
Quarter: 2012Q3

REPORT INFORMATION
  Report Type: 
  Country: None (occurrence: None)
  Receive Date: 20120823
  Receipt Date: 20120817
  Transmission Date: 20120928
  Serious: Yes (Hospitalization, Other)
  Sender: FDA-Public Use
  Company Number: CH-009507513-1208CHE008037

PATIENT

DRUGS (2)
  1. EZETIMIBE [Suspect]
     Dosage: 1 DF, QD
     Route: 048
     Dates: end: 20120327
  2. ATORVASTATIN [Suspect]
     Dosage: 80 MG, QD
     Route: 048

REACTIONS (7)
  - RHABDOMYOLYSIS [None]
  - DIZZINESS [None]
  - METABOLIC ALKALOSIS [None]
  - HEPATIC NECROSIS [None]
  - ATAXIA [None]
  - MUSCULAR WEAKNESS [None]
  - BLOOD CREATININE INCREASED [None]
